FAERS Safety Report 14819996 (Version 1)
Quarter: 2018Q2

REPORT INFORMATION
  Report Type: Report from Study
  Country: US (occurrence: US)
  Receive Date: 20180427
  Receipt Date: 20180427
  Transmission Date: 20180711
  Serious: Yes (Other)
  Sender: FDA-Public Use
  Company Number: US-PFIZER INC-2017411787

PATIENT
  Age: 63 Year
  Sex: Female

DRUGS (6)
  1. IBRANCE [Suspect]
     Active Substance: PALBOCICLIB
     Dosage: 75 MG, 1X/DAY
     Route: 048
     Dates: start: 20180418
  2. IBRANCE [Suspect]
     Active Substance: PALBOCICLIB
     Dosage: 100 MG, CYCLIC(ONCE DAILY FOR 21 DAYS IN A ROW FOLLOWED BY 7 DAYS OFF)
     Route: 048
     Dates: start: 20171017, end: 201802
  3. IBRANCE [Suspect]
     Active Substance: PALBOCICLIB
     Dosage: 125 MG, CYCLIC (ONCE DAILY FOR 21 DAYS IN A ROW FOLLOWED BY 7 DAYS OFF)
     Route: 048
     Dates: start: 20170919, end: 201710
  4. IBRANCE [Suspect]
     Active Substance: PALBOCICLIB
     Dosage: 75 MG, CYCLIC(ONCE DAILY FOR 21 DAYS IN A ROW FOLLOWED BY 7 DAYS OFF)
     Route: 048
     Dates: start: 20180217, end: 20180410
  5. IBRANCE [Suspect]
     Active Substance: PALBOCICLIB
     Indication: BREAST CANCER METASTATIC
     Dosage: 125 MG, CYCLIC, (DAILY FOR 21 DAYS IN A ROW FOLLOWED BY 7 DAYS OFF)
     Route: 048
     Dates: start: 20170919, end: 20171003
  6. IBRANCE [Suspect]
     Active Substance: PALBOCICLIB
     Dosage: 125 MG, CYCLIC (DAILY FOR 21 DAYS IN A ROW FOLLOWED BY 7 DAYS OFF)
     Route: 048
     Dates: start: 20170919, end: 20171016

REACTIONS (26)
  - Fatigue [Not Recovered/Not Resolved]
  - Platelet count decreased [Not Recovered/Not Resolved]
  - Full blood count decreased [Unknown]
  - Upper respiratory tract infection [Unknown]
  - Alopecia [Unknown]
  - Diarrhoea [Unknown]
  - Insomnia [Not Recovered/Not Resolved]
  - Stomatitis [Unknown]
  - Decreased appetite [Unknown]
  - Leukopenia [Not Recovered/Not Resolved]
  - Neutropenia [Recovering/Resolving]
  - Bone marrow failure [Recovering/Resolving]
  - Condition aggravated [Not Recovered/Not Resolved]
  - White blood cell count decreased [Not Recovered/Not Resolved]
  - Hyperaesthesia [Unknown]
  - Pain in extremity [Not Recovered/Not Resolved]
  - Cough [Unknown]
  - Oropharyngeal pain [Unknown]
  - Nasal congestion [Unknown]
  - Back pain [Not Recovered/Not Resolved]
  - Paraesthesia oral [Not Recovered/Not Resolved]
  - Myalgia [Not Recovered/Not Resolved]
  - Red blood cell count decreased [Not Recovered/Not Resolved]
  - Oral pain [Not Recovered/Not Resolved]
  - Rhinorrhoea [Unknown]
  - Arthralgia [Not Recovered/Not Resolved]

NARRATIVE: CASE EVENT DATE: 2017
